FAERS Safety Report 9378335 (Version 1)
Quarter: 2013Q3

REPORT INFORMATION
  Report Type: Spontaneous
  Country: ES (occurrence: ES)
  Receive Date: 20130701
  Receipt Date: 20130701
  Transmission Date: 20140515
  Serious: Yes (Death)
  Sender: FDA-Public Use
  Company Number: ES-BAXTER-2013BAX023742

PATIENT
  Age: 69 Year
  Sex: Male

DRUGS (16)
  1. GENOXAL 1 G INYECTABLE [Suspect]
     Indication: PLASMA CELL MYELOMA
     Route: 042
     Dates: start: 20120403, end: 20130507
  2. REVLIMID [Suspect]
     Indication: PLASMA CELL MYELOMA
     Route: 048
     Dates: start: 20110929, end: 20120227
  3. VINCRISTINA [Suspect]
     Indication: PLASMA CELL MYELOMA
     Route: 042
     Dates: start: 20110402, end: 20110820
  4. ADRIAMICINA [Suspect]
     Indication: PLASMA CELL MYELOMA
     Route: 042
     Dates: start: 20110402, end: 20110820
  5. VELCADE [Suspect]
     Indication: PLASMA CELL MYELOMA
     Route: 042
     Dates: start: 20101015, end: 20110317
  6. DEXAMETASON [Concomitant]
     Indication: PRODUCT USED FOR UNKNOWN INDICATION
     Route: 042
  7. RANITIDINA [Concomitant]
     Indication: PRODUCT USED FOR UNKNOWN INDICATION
     Route: 048
     Dates: end: 20130513
  8. HIDROXIL [Concomitant]
     Indication: PRODUCT USED FOR UNKNOWN INDICATION
     Route: 048
     Dates: start: 20130513, end: 20130513
  9. MASTICAL [Concomitant]
     Indication: PRODUCT USED FOR UNKNOWN INDICATION
     Route: 048
     Dates: end: 20130513
  10. PREDNISONE [Concomitant]
     Indication: PRODUCT USED FOR UNKNOWN INDICATION
     Route: 048
     Dates: end: 20130513
  11. LANTUS [Concomitant]
     Indication: PRODUCT USED FOR UNKNOWN INDICATION
     Route: 058
     Dates: end: 20130513
  12. CLEXANE [Concomitant]
     Indication: PRODUCT USED FOR UNKNOWN INDICATION
     Route: 058
     Dates: end: 20130513
  13. ZEFFIX [Concomitant]
     Indication: PRODUCT USED FOR UNKNOWN INDICATION
     Route: 048
     Dates: end: 20130513
  14. LYRICA [Concomitant]
     Indication: PRODUCT USED FOR UNKNOWN INDICATION
     Route: 048
     Dates: end: 20130513
  15. NOCTAMID [Concomitant]
     Indication: PRODUCT USED FOR UNKNOWN INDICATION
     Route: 048
     Dates: end: 20130513
  16. VIREAD [Concomitant]
     Indication: HEPATITIS B
     Route: 048
     Dates: end: 20130513

REACTIONS (1)
  - Progressive multifocal leukoencephalopathy [Fatal]
